FAERS Safety Report 6479224-8 (Version None)
Quarter: 2009Q4

REPORT INFORMATION
  Report Type: 
  Country: None (occurrence: None)
  Receive Date: 20091207
  Receipt Date: 20090217
  Transmission Date: 20100525
  Serious: No
  Sender: FDA-Public Use
  Company Number: US-AMGEN-KDL334376

PATIENT
  Sex: Male

DRUGS (5)
  1. ENBREL [Suspect]
     Indication: RHEUMATOID ARTHRITIS
     Route: 058
     Dates: start: 20050205
  2. ADVIL [Concomitant]
  3. GABAPENTIN [Concomitant]
  4. MIRALAX [Concomitant]
  5. LIPITOR [Concomitant]

REACTIONS (1)
  - RHINOVIRUS INFECTION [None]
